FAERS Safety Report 7793111-4 (Version None)
Quarter: 2011Q4

REPORT INFORMATION
  Report Type: 
  Country: None (occurrence: None)
  Receive Date: 20111003
  Receipt Date: 20110926
  Transmission Date: 20120403
  Serious: Yes (Other)
  Sender: FDA-Public Use
  Company Number: US-PFIZER INC-2011228728

PATIENT
  Sex: Female
  Weight: 111.11 kg

DRUGS (11)
  1. EFFEXOR XR [Suspect]
     Indication: BIPOLAR DISORDER
     Dosage: 225 MG, 1X/DAY
     Route: 048
     Dates: start: 20110914
  2. PROVERA [Concomitant]
     Indication: HOT FLUSH
     Dosage: UNK
  3. BENTYL [Concomitant]
     Indication: ABDOMINAL PAIN UPPER
     Dosage: UNK
  4. OMEPRAZOLE [Concomitant]
     Dosage: UNK
  5. EFFEXOR [Suspect]
     Dosage: 150 MG, 1X/DAY
     Dates: start: 20090101, end: 20110914
  6. SOMA [Concomitant]
     Indication: BACK PAIN
     Dosage: UNK
  7. VOLTAREN [Concomitant]
     Indication: BACK PAIN
     Dosage: UNK
  8. EFFEXOR [Suspect]
     Indication: BIPOLAR DISORDER
     Dosage: 75 MG, 1X/DAY
     Dates: start: 20010101, end: 20020101
  9. VICODIN ES [Concomitant]
     Indication: BACK PAIN
     Dosage: UNK
  10. EFFEXOR [Suspect]
     Dosage: 75 MG, 1X/DAY
     Dates: start: 20070901, end: 20090101
  11. LOPID [Concomitant]
     Indication: BLOOD CHOLESTEROL INCREASED
     Dosage: UNK

REACTIONS (4)
  - MYALGIA [None]
  - BLOOD CREATININE INCREASED [None]
  - MEDICATION RESIDUE [None]
  - GAIT DISTURBANCE [None]
